FAERS Safety Report 9601209 (Version 2)
Quarter: 2013Q4

REPORT INFORMATION
  Report Type: Report from Study
  Country: US (occurrence: US)
  Receive Date: 20131005
  Receipt Date: 20131213
  Transmission Date: 20140711
  Serious: Yes (Hospitalization)
  Sender: FDA-Public Use
  Company Number: US-JNJFOC-20130914710

PATIENT
  Age: 20 Year
  Sex: Female
  Weight: 129.3 kg

DRUGS (4)
  1. APAP [Suspect]
     Route: 048
  2. APAP [Suspect]
     Indication: SELF INJURIOUS BEHAVIOUR
     Route: 048
  3. ALCOHOL [Suspect]
     Indication: PRODUCT USED FOR UNKNOWN INDICATION
     Route: 065
  4. INSULIN [Concomitant]
     Indication: PRODUCT USED FOR UNKNOWN INDICATION
     Route: 065

REACTIONS (4)
  - Intentional self-injury [Recovered/Resolved]
  - Alcohol poisoning [Recovered/Resolved]
  - Intentional overdose [Recovered/Resolved]
  - Vomiting [Recovered/Resolved]
